FAERS Safety Report 9129514 (Version 4)
Quarter: 2013Q3

REPORT INFORMATION
  Report Type: Report from Study
  Country: US (occurrence: US)
  Receive Date: 20130228
  Receipt Date: 20130712
  Transmission Date: 20140515
  Serious: Yes (Other)
  Sender: FDA-Public Use
  Company Number: PHEH2013US004690

PATIENT
  Age: 28 Year
  Sex: Female
  Weight: 57.6 kg

DRUGS (7)
  1. TASIGNA [Suspect]
     Indication: CHRONIC MYELOID LEUKAEMIA
     Dosage: 400 MG, BID
     Route: 047
  2. TASIGNA [Suspect]
     Dosage: 150 MG, BID
     Route: 048
     Dates: start: 200911
  3. TASIGNA [Suspect]
     Dosage: 400 MG, BID
     Dates: start: 20110101
  4. ZOFRAN [Concomitant]
     Dosage: 4 MG, UNK
     Route: 048
     Dates: start: 20090727
  5. MOTRIN [Concomitant]
     Dosage: 400 MG, UNK
     Route: 048
  6. LASIX [Concomitant]
     Dosage: 20 MG, QD
     Route: 048
     Dates: start: 20080925
  7. YASMIN 28 [Concomitant]
     Dosage: UNK
     Dates: start: 20080320

REACTIONS (9)
  - Premature delivery [Unknown]
  - Splenomegaly [Unknown]
  - Pallor [Unknown]
  - Vein disorder [Unknown]
  - Abdominal pain [Unknown]
  - Rash generalised [Unknown]
  - Fatigue [Recovered/Resolved]
  - Blood bilirubin increased [Unknown]
  - Exposure during pregnancy [Unknown]
